FAERS Safety Report 10015002 (Version 2)
Quarter: 2014Q1

REPORT INFORMATION
  Report Type: Spontaneous
  Country: JP (occurrence: JP)
  Receive Date: 20140317
  Receipt Date: 20140317
  Transmission Date: 20141002
  Serious: Yes (Hospitalization, Other)
  Sender: FDA-Public Use
  Company Number: JP-PFIZER INC-2014060352

PATIENT
  Age: 50 Year
  Sex: Male

DRUGS (2)
  1. ALDACTONE A [Suspect]
     Indication: CARDIAC FAILURE
     Dosage: UNK
     Route: 048
  2. ALDACTONE A [Suspect]
     Dosage: 50 MG, DAILY
     Route: 048

REACTIONS (2)
  - Cardiac disorder [Unknown]
  - Blood potassium increased [Recovered/Resolved]
